FAERS Safety Report 21853483 (Version 2)
Quarter: 2023Q1

REPORT INFORMATION
  Report Type: Spontaneous
  Country: US (occurrence: US)
  Receive Date: 20230112
  Receipt Date: 20230117
  Transmission Date: 20230417
  Serious: No
  Sender: FDA-Public Use
  Company Number: US-SANOFI-01435874

PATIENT
  Age: 65 Year
  Sex: Male

DRUGS (1)
  1. TOUJEO [Suspect]
     Active Substance: INSULIN GLARGINE
     Indication: Type 2 diabetes mellitus
     Dosage: 16 U, 1X. DRUG TREATMENT DURATION:ONE YEAR OR MORE
     Dates: end: 20220107

REACTIONS (4)
  - Nasopharyngitis [Unknown]
  - Blood glucose increased [Unknown]
  - Product dose omission issue [Unknown]
  - Product dispensing issue [Unknown]
